FAERS Safety Report 5228294-3 (Version None)
Quarter: 2007Q1

REPORT INFORMATION
  Report Type: 
  Country: None (occurrence: None)
  Receive Date: 20070205
  Receipt Date: 20070125
  Transmission Date: 20070707
  Serious: Yes (Hospitalization)
  Sender: FDA-Public Use
  Company Number: JP-JNJFOC-20070104707

PATIENT
  Sex: Female
  Weight: 44 kg

DRUGS (9)
  1. REMICADE [Suspect]
     Route: 042
  2. REMICADE [Suspect]
     Indication: RHEUMATOID ARTHRITIS
     Route: 042
  3. RHEUMATREX [Suspect]
     Indication: RHEUMATOID ARTHRITIS
     Route: 048
  4. ISCOTIN [Concomitant]
     Indication: ANTIBIOTIC PROPHYLAXIS
  5. FOLIAMIN [Concomitant]
     Indication: PROPHYLAXIS
     Route: 048
  6. PYDOXAL [Concomitant]
     Route: 048
  7. ONEALFA [Concomitant]
     Indication: OSTEOPOROSIS
     Dosage: DOSE = 1.0 RG
     Route: 048
  8. LOXONIN [Concomitant]
     Indication: RHEUMATOID ARTHRITIS
     Route: 048
  9. LOXONIN [Concomitant]
     Indication: ARTHRALGIA
     Route: 048

REACTIONS (1)
  - PNEUMOCYSTIS JIROVECI PNEUMONIA [None]
